FAERS Safety Report 17356499 (Version 3)
Quarter: 2021Q1

REPORT INFORMATION
  Report Type: Report from Study
  Country: JP (occurrence: JP)
  Receive Date: 20200131
  Receipt Date: 20210224
  Transmission Date: 20210419
  Serious: Yes (Death, Hospitalization, Other)
  Sender: FDA-Public Use
  Company Number: JP-AMGEN-JPNCT2017185649

PATIENT
  Age: 81 Year
  Sex: Female

DRUGS (24)
  1. CARBOCISTEINE [Concomitant]
     Active Substance: CARBOCYSTEINE
     Indication: SINUSITIS
     Dosage: 1500 MILLIGRAM
     Route: 048
     Dates: start: 20151208, end: 20160119
  2. ITRIZOLE [Concomitant]
     Active Substance: ITRACONAZOLE
     Dosage: 20 MILLILITER
     Route: 048
     Dates: start: 20160126, end: 20170126
  3. XYZAL [Concomitant]
     Active Substance: LEVOCETIRIZINE DIHYDROCHLORIDE
     Indication: URTICARIA
     Dosage: 5 MILLIGRAM
     Route: 048
     Dates: start: 20160209, end: 20160808
  4. DARBEPOETIN ALFA [Suspect]
     Active Substance: DARBEPOETIN ALFA
     Dosage: 120 MICROGRAM, Q3WK
     Route: 058
     Dates: start: 20170223, end: 20171102
  5. DARBEPOETIN ALFA [Suspect]
     Active Substance: DARBEPOETIN ALFA
     Dosage: 120 MICROGRAM
     Route: 058
     Dates: start: 20171121, end: 20171121
  6. KLARICID [CLARITHROMYCIN] [Concomitant]
     Active Substance: CLARITHROMYCIN
     Indication: SINUSITIS
     Dosage: 400 MILLIGRAM
     Route: 048
     Dates: start: 20151208, end: 20151214
  7. DERMOVATE [Concomitant]
     Active Substance: CLOBETASOL
     Indication: URTICARIA
     Dosage: UNK
     Route: 061
     Dates: start: 20160209, end: 20160223
  8. LEVOFLOXACIN HEMIHYDRATE [Concomitant]
     Active Substance: LEVOFLOXACIN
     Dosage: 500 MILLIGRAM
     Route: 048
     Dates: start: 20161129
  9. CALONAL [Concomitant]
     Active Substance: ACETAMINOPHEN
     Dosage: 500 MILLIGRAM
     Route: 048
     Dates: start: 20161115
  10. DARBEPOETIN ALFA [Suspect]
     Active Substance: DARBEPOETIN ALFA
     Dosage: 180 MICROGRAM
     Route: 058
     Dates: start: 20160116, end: 20160116
  11. CARBAZOCHROME SULFONATE NA [Concomitant]
     Indication: HAEMORRHAGIC DIATHESIS
     Dosage: 90 MILLIGRAM
     Route: 048
     Dates: start: 20170316
  12. DARBEPOETIN ALFA [Suspect]
     Active Substance: DARBEPOETIN ALFA
     Dosage: 120 MICROGRAM, Q3WK
     Route: 058
     Dates: start: 20160126, end: 20160216
  13. LEVOFLOXACIN HEMIHYDRATE [Concomitant]
     Active Substance: LEVOFLOXACIN
     Indication: SINUSITIS
     Dosage: 500 MILLIGRAM
     Route: 048
     Dates: start: 20151222, end: 20160119
  14. RABEPRAZOLE NA [Concomitant]
     Active Substance: RABEPRAZOLE SODIUM
     Dosage: 10 MILLIGRAM
     Route: 048
     Dates: start: 20160105, end: 20160119
  15. DARBEPOETIN ALFA [Suspect]
     Active Substance: DARBEPOETIN ALFA
     Dosage: 120 MICROGRAM, Q3WK
     Route: 058
     Dates: start: 20171214, end: 20180104
  16. MAGMITT [Concomitant]
     Active Substance: MAGNESIUM OXIDE
     Dosage: 990 MILLIGRAM
     Route: 048
     Dates: start: 20170406
  17. DARBEPOETIN ALFA [Suspect]
     Active Substance: DARBEPOETIN ALFA
     Indication: MYELODYSPLASTIC SYNDROME
     Dosage: 120 MICROGRAM, Q2WK
     Route: 058
     Dates: start: 20161011, end: 20161108
  18. DARBEPOETIN ALFA [Suspect]
     Active Substance: DARBEPOETIN ALFA
     Dosage: 120 MICROGRAM, Q3WK
     Route: 058
     Dates: start: 20151117, end: 20151208
  19. DARBEPOETIN ALFA [Suspect]
     Active Substance: DARBEPOETIN ALFA
     Dosage: 120 MICROGRAM, Q2WK
     Route: 058
     Dates: start: 20151222, end: 20160105
  20. HEMOPORISON [Concomitant]
     Dosage: 4 GRAM
     Route: 061
     Dates: start: 20171219, end: 20171231
  21. DARBEPOETIN ALFA [Suspect]
     Active Substance: DARBEPOETIN ALFA
     Dosage: 120 MICROGRAM, Q2WK
     Route: 058
     Dates: start: 20160223, end: 20160906
  22. DARBEPOETIN ALFA [Suspect]
     Active Substance: DARBEPOETIN ALFA
     Dosage: 120 MICROGRAM
     Route: 058
     Dates: start: 20180118, end: 20180118
  23. NEXIUM [Concomitant]
     Active Substance: ESOMEPRAZOLE MAGNESIUM
     Dosage: 20 MILLIGRAM
     Route: 048
     Dates: start: 20160202, end: 20161128
  24. TAKECAB [Concomitant]
     Active Substance: VONOPRAZAN FUMARATE
     Dosage: 20 MILLIGRAM
     Route: 048
     Dates: start: 20161129

REACTIONS (5)
  - Glaucoma [Not Recovered/Not Resolved]
  - Gastric antral vascular ectasia [Recovered/Resolved]
  - Pneumonia [Recovering/Resolving]
  - Subdural haematoma [Fatal]
  - Pneumonia [Recovered/Resolved]

NARRATIVE: CASE EVENT DATE: 20160115
